FAERS Safety Report 7860654 (Version 4)
Quarter: 2012Q4

REPORT INFORMATION
  Report Type: 
  Country: US (occurrence: US)
  Receive Date: 20110317
  Receipt Date: 20120904
  Transmission Date: 20130627
  Serious: Yes (Hospitalization, Other)
  Sender: FDA-Public Use
  Company Number: US-PFIZER INC-2011056929

PATIENT
  Age: 71 Year
  Sex: Female

DRUGS (18)
  1. DILANTIN KAPSEAL [Suspect]
     Indication: CONVULSION
     Dosage: 100 mg, every eight hours
     Route: 048
     Dates: start: 20090112
  2. DILANTIN [Suspect]
     Indication: CONVULSION
     Dosage: 100mg 1 tablet in the morning and two tablets in evening
     Route: 048
     Dates: start: 20090113
  3. PROTONIX [Concomitant]
     Dosage: 40 mg daily
     Route: 042
     Dates: start: 20090111
  4. PNEUMOVAX [Concomitant]
     Indication: PNEUMOCOCCAL IMMUNISATION
     Dosage: UNK
     Dates: start: 20090111
  5. NOVOLIN [Concomitant]
     Indication: DIABETES MELLITUS
     Dosage: UNK
     Route: 058
     Dates: start: 20090112
  6. BIDIL [Concomitant]
     Indication: HYPERTENSION
     Dosage: 1 tablet at break fast and at supper
     Dates: start: 20090112
  7. GLUCOVANCE [Concomitant]
     Dosage: 500 mg tablets 1 tablet once daily
     Dates: start: 20090112
  8. SPIRONOLACTONE [Concomitant]
     Indication: FLUID RETENTION
     Dosage: 25mg one tablet orally once daily
     Route: 048
     Dates: start: 20090112
  9. ZOCOR [Concomitant]
     Indication: BLOOD CHOLESTEROL INCREASED
     Dosage: 20 mg, 1x/day at bed time
     Route: 048
     Dates: start: 20090112
  10. COREG [Concomitant]
     Indication: CARDIAC DISORDER
     Dosage: 6.25 mg, 1 tablet 2x/day
     Dates: start: 20090112
  11. LORTAB [Concomitant]
     Indication: PAIN
     Dosage: 650 mg, 4x/day (every 6 hrs)
     Dates: start: 20090112
  12. DULCOLAX [Concomitant]
     Indication: CONSTIPATION
     Dosage: 10mg daily as needed
     Route: 054
     Dates: start: 20090112
  13. MAALOX PLUS [Concomitant]
     Dosage: 30 ml, every 4 hrs
     Dates: start: 20090112
  14. ATIVAN [Concomitant]
     Indication: CONVULSION
     Dosage: 2 mg, as needed
     Route: 042
     Dates: start: 20090112
  15. ZOFRAN [Concomitant]
     Dosage: 2 ml, 4x/day (every 6 hours)
     Dates: start: 20090112
  16. ZOFRAN [Concomitant]
     Dosage: 4 mg, 4x/day (every 6 hours) as needed
     Route: 042
     Dates: start: 20090113
  17. PROMETHAZINE [Concomitant]
     Dosage: 25 mg, 4x/day (every 6 hours)
     Dates: start: 20090112
  18. ACETYLSALICYLIC ACID [Concomitant]
     Dosage: 325 mg, 1 tablet before food
     Route: 048
     Dates: start: 20090113

REACTIONS (1)
  - Stevens-Johnson syndrome [Recovering/Resolving]
